FAERS Safety Report 25454716 (Version 2)
Quarter: 2025Q2

REPORT INFORMATION
  Report Type: Spontaneous
  Country: CA (occurrence: CA)
  Receive Date: 20250619
  Receipt Date: 20250630
  Transmission Date: 20250717
  Serious: Yes (Hospitalization, Other)
  Sender: KARYOPHARM THERAPEUTICS
  Company Number: CA-KARYOPHARM-2025KPT100371

PATIENT

DRUGS (4)
  1. SELINEXOR [Suspect]
     Active Substance: SELINEXOR
     Indication: Plasma cell myeloma
     Route: 048
     Dates: start: 20250606
  2. BORTEZOMIB [Concomitant]
     Active Substance: BORTEZOMIB
  3. DEXAMETHASONE [Concomitant]
     Active Substance: DEXAMETHASONE
  4. METOPROLOL [Concomitant]
     Active Substance: METOPROLOL
     Indication: Atrial fibrillation

REACTIONS (14)
  - Heart rate decreased [Unknown]
  - Haematochezia [Unknown]
  - Gait disturbance [Unknown]
  - Haemoptysis [Unknown]
  - Hypoaesthesia [Unknown]
  - Fatigue [Unknown]
  - Nausea [Recovering/Resolving]
  - Decreased appetite [Unknown]
  - Constipation [Unknown]
  - Dizziness [Unknown]
  - Vision blurred [Unknown]
  - Fall [Unknown]
  - Balance disorder [Unknown]
  - Product use issue [Unknown]

NARRATIVE: CASE EVENT DATE: 20250601
